FAERS Safety Report 23072293 (Version 1)
Quarter: 2023Q4

REPORT INFORMATION
  Report Type: Report from Study
  Country: BR (occurrence: BR)
  Receive Date: 20231017
  Receipt Date: 20231017
  Transmission Date: 20240110
  Serious: Yes (Other)
  Sender: FDA-Public Use
  Company Number: BR-CELLTRION INC.-2023BR019858

PATIENT

DRUGS (1)
  1. INFLIXIMAB [Suspect]
     Active Substance: INFLIXIMAB
     Indication: Ankylosing spondylitis
     Dosage: EVERY 3 MONTHS
     Route: 042
     Dates: start: 20220819

REACTIONS (3)
  - Back pain [Unknown]
  - Therapy interrupted [Unknown]
  - Intentional product use issue [Unknown]
